FAERS Safety Report 9603717 (Version 4)
Quarter: 2014Q1

REPORT INFORMATION
  Report Type: Report from Study
  Country: PH (occurrence: PH)
  Receive Date: 20131007
  Receipt Date: 20140311
  Transmission Date: 20141002
  Serious: Yes (Hospitalization, Other)
  Sender: FDA-Public Use
  Company Number: PH-B.I. PHARMACEUTICALS,INC./RIDGEFIELD-2013-BI-29889BI

PATIENT
  Age: 51 Year
  Sex: Male
  Weight: 95 kg

DRUGS (6)
  1. BI 1356+METFORMIN [Suspect]
     Indication: TYPE 2 DIABETES MELLITUS
     Dosage: DOSE PER APPLICATION: 2,5MG/1000MG; STRENGTH: 5MG/2000MG
     Route: 048
     Dates: start: 20130510, end: 20130920
  2. TWYNSTA [Suspect]
     Indication: HYPERTENSION
     Dosage: TOTAL DAILY DOSE: 10/40 MG
     Route: 048
     Dates: start: 20130315, end: 20130921
  3. NOVOMIX [Concomitant]
     Indication: DIABETES MELLITUS
     Dosage: DAILY DOSE: 50 UNITS
     Route: 058
     Dates: start: 20130924, end: 20131005
  4. LIPWAY SR [Concomitant]
     Indication: DYSLIPIDAEMIA
     Dosage: 250 NR
     Route: 048
     Dates: start: 20130315, end: 20130921
  5. OMEGA FREE FATTY ACID [Concomitant]
     Indication: DYSLIPIDAEMIA
     Dosage: 72 G
     Route: 048
     Dates: start: 201304, end: 20130921
  6. LEVOPHED [Concomitant]
     Indication: POSITIVE CARDIAC INOTROPIC EFFECT
     Dosage: DAILY DOSE: 6MG/ HR
     Route: 042
     Dates: start: 20130921, end: 20130922

REACTIONS (5)
  - Urinary tract infection [Recovered/Resolved]
  - Pharyngotonsillitis [Recovered/Resolved]
  - Septic shock [Recovered/Resolved]
  - Renal failure acute [Recovered/Resolved]
  - Dehydration [Recovered/Resolved]
